FAERS Safety Report 11973348 (Version 1)
Quarter: 2016Q1

REPORT INFORMATION
  Report Type: Report from Study
  Country: US (occurrence: US)
  Receive Date: 20160128
  Receipt Date: 20160128
  Transmission Date: 20160526
  Serious: No
  Sender: FDA-Public Use
  Company Number: US-ABBVIE-15K-163-1396129-00

PATIENT
  Age: 56 Year

DRUGS (2)
  1. HUMIRA [Suspect]
     Active Substance: ADALIMUMAB
     Indication: RHEUMATOID ARTHRITIS
     Route: 065
     Dates: start: 2005
  2. CLINDAMYCIN [Suspect]
     Active Substance: CLINDAMYCIN\CLINDAMYCIN PHOSPHATE
     Indication: TOOTH INFECTION
     Route: 065

REACTIONS (10)
  - Device issue [Unknown]
  - Wrong technique in product usage process [Unknown]
  - Joint stiffness [Unknown]
  - Incorrect dose administered [Unknown]
  - Influenza like illness [Unknown]
  - Arthralgia [Unknown]
  - Tooth infection [Unknown]
  - Device issue [Unknown]
  - Joint swelling [Unknown]
  - Endodontic procedure [Unknown]

NARRATIVE: CASE EVENT DATE: 20150422
